FAERS Safety Report 21104657 (Version 1)
Quarter: 2022Q3

REPORT INFORMATION
  Report Type: Spontaneous
  Country: US (occurrence: US)
  Receive Date: 20220720
  Receipt Date: 20220720
  Transmission Date: 20221027
  Serious: Yes (Life-Threatening, Hospitalization)
  Sender: FDA-Public Use
  Company Number: US-MYLANLABS-2022M1079209

PATIENT
  Age: 67 Year
  Sex: Female

DRUGS (10)
  1. PREDNISONE [Suspect]
     Active Substance: PREDNISONE
     Indication: Connective tissue disorder
     Dosage: 5 MILLIGRAM, QD
     Route: 065
  2. PREDNISONE [Suspect]
     Active Substance: PREDNISONE
     Indication: Immunosuppressant drug therapy
  3. MYCOPHENOLATE MOFETIL [Suspect]
     Active Substance: MYCOPHENOLATE MOFETIL
     Indication: Connective tissue disorder
     Dosage: 1000 MILLIGRAM, BID
     Route: 065
  4. MYCOPHENOLATE MOFETIL [Suspect]
     Active Substance: MYCOPHENOLATE MOFETIL
     Indication: Immunosuppressant drug therapy
     Dosage: THERAPY RESTARTED
     Route: 065
  5. HYDROXYCHLOROQUINE [Suspect]
     Active Substance: HYDROXYCHLOROQUINE
     Indication: Connective tissue disorder
     Dosage: 200 MILLIGRAM, BID
     Route: 065
  6. HYDROXYCHLOROQUINE [Suspect]
     Active Substance: HYDROXYCHLOROQUINE
     Indication: Immunosuppressant drug therapy
     Dosage: THERAPY RESTARTED
     Route: 065
  7. CASIRIVIMAB\IMDEVIMAB [Concomitant]
     Active Substance: CASIRIVIMAB\IMDEVIMAB
     Indication: COVID-19
     Dosage: UNK
     Route: 065
  8. PFIZER-BIONTECH COVID-19 VACCINE [Concomitant]
     Active Substance: TOZINAMERAN
     Indication: COVID-19 immunisation
     Dosage: UNK
     Route: 065
  9. METHYLPREDNISOLONE [Concomitant]
     Active Substance: METHYLPREDNISOLONE
     Indication: COVID-19
     Dosage: UNK
     Route: 042
  10. TOCILIZUMAB [Concomitant]
     Active Substance: TOCILIZUMAB
     Indication: COVID-19
     Dosage: UNK
     Route: 065

REACTIONS (8)
  - COVID-19 [Recovering/Resolving]
  - Retroperitoneal haematoma [Recovered/Resolved]
  - Haematoma muscle [Recovered/Resolved]
  - Disseminated intravascular coagulation [Recovering/Resolving]
  - Hyporesponsive to stimuli [Recovering/Resolving]
  - Pulmonary embolism [Recovering/Resolving]
  - Acute kidney injury [Recovering/Resolving]
  - Confusional state [Recovering/Resolving]
